FAERS Safety Report 20769938 (Version 1)
Quarter: 2022Q2

REPORT INFORMATION
  Report Type: Spontaneous
  Country: US (occurrence: US)
  Receive Date: 20220429
  Receipt Date: 20220429
  Transmission Date: 20220721
  Serious: Yes (Hospitalization, Other)
  Sender: FDA-Public Use
  Company Number: US-UNIQUE PHARMACEUTICAL LABORATORIES, A DIV. OF JBCPL-2022UNI000016

PATIENT
  Sex: Female

DRUGS (1)
  1. CARBAMAZEPINE [Suspect]
     Active Substance: CARBAMAZEPINE
     Indication: Seizure
     Dosage: UNK, BID
     Route: 065
     Dates: start: 20220117

REACTIONS (4)
  - Blindness [Unknown]
  - Constipation [Unknown]
  - Anticonvulsant drug level below therapeutic [Not Recovered/Not Resolved]
  - Product colour issue [Not Recovered/Not Resolved]
